FAERS Safety Report 5741710-3 (Version None)
Quarter: 2008Q2

REPORT INFORMATION
  Report Type: 
  Country: None (occurrence: None)
  Receive Date: 20080519
  Receipt Date: 20070627
  Transmission Date: 20081010
  Serious: No
  Sender: FDA-Public Use
  Company Number: US-BAYER-US-2007-023964

PATIENT
  Age: 60 Year
  Sex: Female
  Weight: 63 kg

DRUGS (2)
  1. ULTRAVIST (PHARMACY BULK) [Suspect]
     Indication: COMPUTERISED TOMOGRAM
     Dosage: UNIT DOSE: 150 ML
     Route: 042
     Dates: start: 20070620, end: 20070620
  2. MEDROL [Concomitant]
     Dosage: UNIT DOSE: 22 MG
     Dates: start: 20070620, end: 20070620

REACTIONS (2)
  - CHEST DISCOMFORT [None]
  - DYSPNOEA [None]
